FAERS Safety Report 20830706 (Version 1)
Quarter: 2022Q2

REPORT INFORMATION
  Report Type: Spontaneous
  Country: US (occurrence: US)
  Receive Date: 20220515
  Receipt Date: 20220515
  Transmission Date: 20220721
  Serious: No
  Sender: FDA-Public Use
  Company Number: US-ORGANON-O2205USA000962

PATIENT
  Sex: Female

DRUGS (9)
  1. ZETIA [Suspect]
     Active Substance: EZETIMIBE
     Dosage: UNK
     Route: 048
  2. ALPRAZOLAM [Suspect]
     Active Substance: ALPRAZOLAM
     Dosage: UNK
  3. AZITHROMYCIN [Suspect]
     Active Substance: AZITHROMYCIN
     Dosage: UNK
  4. CEPHALEXIN [Suspect]
     Active Substance: CEPHALEXIN
     Dosage: UNK
  5. PENICILLIN [Suspect]
     Active Substance: PENICILLIN
     Dosage: UNK
  6. PREDNISONE [Concomitant]
     Active Substance: PREDNISONE
     Dosage: UNK
  7. MINOCYCLINE [Concomitant]
     Active Substance: MINOCYCLINE HYDROCHLORIDE
     Dosage: UNK
  8. SPIRIVA [Concomitant]
     Active Substance: TIOTROPIUM BROMIDE MONOHYDRATE
     Dosage: UNK
  9. ASMANEX [Concomitant]
     Active Substance: MOMETASONE FUROATE
     Indication: Lung disorder
     Dosage: 2 PUFFS DAILY

REACTIONS (1)
  - Drug hypersensitivity [Unknown]
